FAERS Safety Report 9289326 (Version 2)
Quarter: 2013Q2

REPORT INFORMATION
  Report Type: Spontaneous
  Country: IT (occurrence: IT)
  Receive Date: 20130514
  Receipt Date: 20130621
  Transmission Date: 20140414
  Serious: Yes (Hospitalization)
  Sender: FDA-Public Use
  Company Number: CHPA2013IT008231

PATIENT
  Age: 83 Year
  Sex: Female

DRUGS (4)
  1. PURSENNID [Suspect]
     Indication: ASTRINGENT THERAPY
     Dosage: 24 MG, QD
     Route: 048
     Dates: start: 20120101, end: 20130405
  2. LOSEC//OMEPRAZOLE [Suspect]
     Indication: PROPHYLAXIS AGAINST GASTROINTESTINAL ULCER
     Dosage: 20 MG, QD
     Route: 048
     Dates: start: 20110101, end: 20130412
  3. TENORETIC [Suspect]
     Indication: HYPERTENSION
     Route: 048
     Dates: start: 20110101, end: 20130412
  4. LYRICA [Suspect]
     Indication: NEUROPATHY PERIPHERAL
     Dosage: 75 MG, QD
     Route: 048
     Dates: start: 20110101, end: 20130412

REACTIONS (1)
  - Hyponatraemia [Recovered/Resolved]
